FAERS Safety Report 13403389 (Version 1)
Quarter: 2017Q2

REPORT INFORMATION
  Report Type: Spontaneous
  Country: US (occurrence: US)
  Receive Date: 20170404
  Receipt Date: 20170404
  Transmission Date: 20170830
  Serious: Yes (Other)
  Sender: FDA-Public Use
  Company Number: None

PATIENT
  Age: 64 Year
  Sex: Female
  Weight: 108 kg

DRUGS (11)
  1. SULAR [Concomitant]
     Active Substance: NISOLDIPINE
  2. LOPRESSOR [Concomitant]
     Active Substance: METOPROLOL TARTRATE
  3. LOSARTAN. [Suspect]
     Active Substance: LOSARTAN
     Indication: HYPERTENSION
     Route: 048
     Dates: start: 20080425, end: 20170404
  4. DILTIAZEM. [Concomitant]
     Active Substance: DILTIAZEM
  5. LOSARTAN. [Suspect]
     Active Substance: LOSARTAN
     Indication: ATRIAL FIBRILLATION
     Route: 048
     Dates: start: 20080425, end: 20170404
  6. AMLODIPINE [Concomitant]
     Active Substance: AMLODIPINE BESYLATE
  7. PLENDIL [Concomitant]
     Active Substance: FELODIPINE
  8. METOPROLOL. [Suspect]
     Active Substance: METOPROLOL
     Indication: HYPERTENSION
     Route: 048
     Dates: start: 20010131, end: 20170404
  9. METOPROLOL. [Suspect]
     Active Substance: METOPROLOL
     Indication: ATRIAL FIBRILLATION
     Route: 048
     Dates: start: 20010131, end: 20170404
  10. NORVASC [Concomitant]
     Active Substance: AMLODIPINE BESYLATE
  11. COREG [Concomitant]
     Active Substance: CARVEDILOL

REACTIONS (3)
  - Blood pressure increased [None]
  - Product substitution issue [None]
  - Atrial fibrillation [None]
